FAERS Safety Report 5138253-7 (Version None)
Quarter: 2006Q4

REPORT INFORMATION
  Report Type: 
  Country: None (occurrence: None)
  Receive Date: 20061030
  Receipt Date: 20060804
  Transmission Date: 20070319
  Serious: No
  Sender: FDA-Public Use
  Company Number: US-GLAXOSMITHKLINE-A0615293A

PATIENT
  Age: 47 Year
  Sex: Female

DRUGS (2)
  1. ADVAIR HFA [Suspect]
     Indication: ASTHMA
     Dosage: 1PUFF TWICE PER DAY
     Route: 055
  2. ALLEGRA-D 12 HOUR [Concomitant]

REACTIONS (2)
  - MUSCLE SPASMS [None]
  - PHARYNGOLARYNGEAL PAIN [None]
